FAERS Safety Report 6397301-7 (Version None)
Quarter: 2009Q4

REPORT INFORMATION
  Report Type: 
  Country: None (occurrence: None)
  Receive Date: 20091012
  Receipt Date: 20090930
  Transmission Date: 20100525
  Serious: Yes (Hospitalization)
  Sender: FDA-Public Use
  Company Number: US-MYLANLABS-2009S1016194

PATIENT
  Age: 56 Year
  Sex: Female

DRUGS (14)
  1. MILNACIPRAN HYDROCHLORIDE [Interacting]
  2. MILNACIPRAN HYDROCHLORIDE [Interacting]
     Route: 048
     Dates: start: 20090801, end: 20090801
  3. MILNACIPRAN HYDROCHLORIDE [Interacting]
     Route: 048
     Dates: start: 20090801, end: 20090801
  4. TRAMADOL HCL [Suspect]
     Route: 048
  5. TOPAMAX [Concomitant]
  6. ESTRATEST [Concomitant]
  7. CIRUELAX /00142208/ [Concomitant]
  8. MELATONIN [Concomitant]
  9. ACETAMINOPHEN [Concomitant]
  10. ZANAFLEX [Concomitant]
  11. FLUTICASONE PROPIONATE [Concomitant]
     Route: 055
  12. LIDOCAINE [Concomitant]
     Route: 062
  13. VAGIFEM [Concomitant]
  14. RHINARIS [Concomitant]

REACTIONS (7)
  - CHEST DISCOMFORT [None]
  - CHEST PAIN [None]
  - DRUG INTERACTION [None]
  - HEADACHE [None]
  - HYPERHIDROSIS [None]
  - HYPERTENSION [None]
  - SEROTONIN SYNDROME [None]
